FAERS Safety Report 5936658-5 (Version None)
Quarter: 2008Q4

REPORT INFORMATION
  Report Type: 
  Country: None (occurrence: None)
  Receive Date: 20081021
  Receipt Date: 20080505
  Transmission Date: 20090506
  Serious: Yes (Other)
  Sender: FDA-Public Use
  Company Number: HQWYE134403MAR06

PATIENT
  Age: 60 Year
  Sex: Female
  Weight: 88.98 kg

DRUGS (1)
  1. PREMARIN [Suspect]
     Indication: HORMONE REPLACEMENT THERAPY
     Dosage: 1 TABLET 1X PER 1 DAY
     Dates: start: 19980101, end: 20030101

REACTIONS (1)
  - BREAST CANCER [None]
